FAERS Safety Report 9246315 (Version 1)
Quarter: 2013Q2

REPORT INFORMATION
  Report Type: Spontaneous
  Country: US (occurrence: US)
  Receive Date: 20130422
  Receipt Date: 20130422
  Transmission Date: 20140414
  Serious: No
  Sender: FDA-Public Use
  Company Number: US-B.I. PHARMACEUTICALS,INC./RIDGEFIELD-2013-BI-10049BP

PATIENT
  Age: 55 Year
  Sex: Male

DRUGS (1)
  1. SPIRIVA [Suspect]
     Indication: CARDIOMYOPATHY
     Dosage: 18 MCG
     Route: 048
     Dates: start: 20130410, end: 20130410

REACTIONS (1)
  - Incorrect route of drug administration [Recovered/Resolved]
